FAERS Safety Report 19327627 (Version 2)
Quarter: 2021Q2

REPORT INFORMATION
  Report Type: Spontaneous
  Country: PL (occurrence: PL)
  Receive Date: 20210528
  Receipt Date: 20210604
  Transmission Date: 20210717
  Serious: Yes (Hospitalization, Other)
  Sender: FDA-Public Use
  Company Number: PL-IPSEN BIOPHARMACEUTICALS, INC.-2021-13067

PATIENT
  Age: 29 Year
  Sex: Female
  Weight: 60 kg

DRUGS (4)
  1. AZZALURE [Suspect]
     Active Substance: BOTULINUM TOXIN TYPE A
     Indication: SKIN WRINKLING
     Dosage: DOSE NOT REPORTED
     Route: 065
     Dates: start: 2017, end: 2017
  2. BISOHEXAL [Concomitant]
     Active Substance: BISOPROLOL FUMARATE
     Dates: start: 2017
  3. AZZALURE [Suspect]
     Active Substance: BOTULINUM TOXIN TYPE A
     Indication: SKIN WRINKLING
  4. AZZALURE [Suspect]
     Active Substance: BOTULINUM TOXIN TYPE A
     Indication: OFF LABEL USE

REACTIONS (15)
  - Fear of death [Recovered/Resolved]
  - Loss of consciousness [Recovered/Resolved]
  - Feeling abnormal [Recovered/Resolved]
  - Feeling cold [Recovered/Resolved]
  - Tension headache [Recovered/Resolved]
  - Tremor [Recovered/Resolved]
  - Tinnitus [Recovered/Resolved]
  - Diarrhoea [Recovered/Resolved]
  - Off label use [Unknown]
  - Vomiting [Recovered/Resolved]
  - Palpitations [Recovered/Resolved]
  - Asthenia [Recovered/Resolved]
  - Hypoaesthesia [Recovered/Resolved]
  - Pallor [Recovered/Resolved]
  - Hypersensitivity [Recovered/Resolved]

NARRATIVE: CASE EVENT DATE: 2017
